FAERS Safety Report 7272614-5 (Version None)
Quarter: 2011Q1

REPORT INFORMATION
  Report Type: 
  Country: None (occurrence: None)
  Receive Date: 20110203
  Receipt Date: 20110113
  Transmission Date: 20110831
  Serious: Yes (Hospitalization)
  Sender: FDA-Public Use
  Company Number: DE-ROCHE-756929

PATIENT
  Sex: Male
  Weight: 178 kg

DRUGS (1)
  1. METHOXY POLYETHYLENE GLYCOL-EPOETIN BETA [Suspect]
     Indication: RENAL TRANSPLANT
     Route: 058
     Dates: start: 20090716

REACTIONS (1)
  - ANGINA PECTORIS [None]
